FAERS Safety Report 8031793-2 (Version None)
Quarter: 2012Q1

REPORT INFORMATION
  Report Type: 
  Country: None (occurrence: None)
  Receive Date: 20120109
  Receipt Date: 20120104
  Transmission Date: 20120608
  Serious: Yes (Life-Threatening, Hospitalization, Other)
  Sender: FDA-Public Use
  Company Number: PHHY2012FR000870

PATIENT
  Age: 74 Year
  Sex: Female

DRUGS (3)
  1. STALEVO 100 [Suspect]
     Indication: PARKINSON'S DISEASE
     Dosage: 100 MG 5 TIMES A DAY, 200 MG BID
  2. METFORMIN HCL [Concomitant]
  3. CRESTOR [Concomitant]

REACTIONS (5)
  - SUICIDE ATTEMPT [None]
  - PARANOIA [None]
  - SUICIDAL IDEATION [None]
  - DELIRIUM [None]
  - ON AND OFF PHENOMENON [None]
